FAERS Safety Report 8504031-1 (Version None)
Quarter: 2012Q3

REPORT INFORMATION
  Report Type: 
  Country: None (occurrence: None)
  Receive Date: 20120711
  Receipt Date: 20120629
  Transmission Date: 20120928
  Serious: Yes (Hospitalization, Other)
  Sender: FDA-Public Use
  Company Number: US-ELI_LILLY_AND_COMPANY-US201207000239

PATIENT
  Age: 52 Year
  Sex: Female

DRUGS (3)
  1. LISINOPRIL                              /USA/ [Concomitant]
     Indication: BLOOD PRESSURE ABNORMAL
  2. HUMALOG [Suspect]
     Indication: DIABETES MELLITUS
     Dosage: UNK, UNKNOWN
     Dates: start: 20120601
  3. CLONIDINE [Concomitant]
     Indication: BLOOD PRESSURE ABNORMAL

REACTIONS (5)
  - VISION BLURRED [None]
  - LIVER DISORDER [None]
  - RENAL FAILURE [None]
  - HEPATITIS VIRAL [None]
  - PALPITATIONS [None]
